FAERS Safety Report 19556800 (Version 1)
Quarter: 2021Q3

REPORT INFORMATION
  Report Type: Spontaneous
  Country: CN (occurrence: CN)
  Receive Date: 20210715
  Receipt Date: 20210715
  Transmission Date: 20211014
  Serious: Yes (Death, Hospitalization)
  Sender: FDA-Public Use
  Company Number: NVSC2021CN158084

PATIENT

DRUGS (1)
  1. LESCOL [Suspect]
     Active Substance: FLUVASTATIN SODIUM
     Indication: CARDIAC FAILURE
     Dosage: 80 MG, QD, AT 8 O^ CLOCK EVERY NIGHT
     Route: 048

REACTIONS (4)
  - Product use in unapproved indication [Unknown]
  - Cardiac failure [Fatal]
  - Drug ineffective [Fatal]
  - Cardiogenic shock [Fatal]
